FAERS Safety Report 11236195 (Version 3)
Quarter: 2015Q4

REPORT INFORMATION
  Report Type: Report from Study
  Country: US (occurrence: US)
  Receive Date: 20150702
  Receipt Date: 20151103
  Transmission Date: 20160304
  Serious: Yes (Hospitalization)
  Sender: FDA-Public Use
  Company Number: US-ACTELION-A-NJ2015-120194

PATIENT
  Age: 59 Year
  Sex: Female

DRUGS (1)
  1. TRACLEER [Suspect]
     Active Substance: BOSENTAN
     Indication: PULMONARY ARTERIAL HYPERTENSION
     Dosage: UNK
     Route: 048

REACTIONS (9)
  - Hypotension [Unknown]
  - Peripheral coldness [Unknown]
  - Dizziness [Unknown]
  - Paranasal sinus hypersecretion [Unknown]
  - Nasal congestion [Unknown]
  - Weight decreased [Unknown]
  - Nausea [Unknown]
  - Lung neoplasm malignant [Unknown]
  - Sinus disorder [Unknown]

NARRATIVE: CASE EVENT DATE: 201508
